FAERS Safety Report 8666078 (Version 2)
Quarter: 2012Q4

REPORT INFORMATION
  Report Type: 
  Country: GB (occurrence: GB)
  Receive Date: 20120716
  Receipt Date: 20120920
  Transmission Date: 20130627
  Serious: Yes (Other)
  Sender: FDA-Public Use
  Company Number: GB-MYLANLABS-2012S1013393

PATIENT
  Age: 10 Year
  Sex: Male

DRUGS (1)
  1. RISPERIDONE [Suspect]
     Indication: PRODUCT USED FOR UNKNOWN INDICATION
     Dates: start: 20120319, end: 20120614

REACTIONS (3)
  - Tardive dyskinesia [Recovered/Resolved]
  - Movement disorder [Recovered/Resolved]
  - Tic [Recovered/Resolved]
